FAERS Safety Report 9633081 (Version 2)
Quarter: 2013Q4

REPORT INFORMATION
  Report Type: Report from Study
  Country: US (occurrence: US)
  Receive Date: 20131018
  Receipt Date: 20131018
  Transmission Date: 20140711
  Serious: Yes (Hospitalization, Other)
  Sender: FDA-Public Use
  Company Number: US-ABBVIE-13P-163-1112896-00

PATIENT
  Age: 48 Year
  Sex: Female
  Weight: 65.83 kg

DRUGS (15)
  1. HUMIRA [Suspect]
     Indication: CROHN^S DISEASE
     Dates: start: 2011, end: 2012
  2. HUMIRA [Suspect]
     Dates: start: 20130628
  3. CIMZIA [Suspect]
     Indication: CROHN^S DISEASE
     Dates: start: 2012
  4. REMICADE [Suspect]
     Indication: CROHN^S DISEASE
  5. PRILOSEC [Concomitant]
     Indication: GASTROOESOPHAGEAL REFLUX DISEASE
  6. LOMOTIL [Concomitant]
     Indication: DIARRHOEA
  7. ZOFRAN [Concomitant]
     Indication: NAUSEA
  8. POTASSIUM [Concomitant]
     Indication: PRODUCT USED FOR UNKNOWN INDICATION
  9. VITAMIN B12 [Concomitant]
     Indication: PRODUCT USED FOR UNKNOWN INDICATION
  10. LEVOTHYROXIN [Concomitant]
     Indication: THYROID DISORDER
  11. COUMADIN [Concomitant]
     Indication: PULMONARY EMBOLISM
  12. OMEPRAZOLE [Concomitant]
     Indication: PRODUCT USED FOR UNKNOWN INDICATION
  13. SENNALEX [Concomitant]
     Indication: PRODUCT USED FOR UNKNOWN INDICATION
  14. TRAMADOL ER [Concomitant]
     Indication: PRODUCT USED FOR UNKNOWN INDICATION
  15. WARFARIN [Concomitant]
     Indication: PRODUCT USED FOR UNKNOWN INDICATION

REACTIONS (14)
  - Thrombosis [Recovered/Resolved]
  - Local swelling [Recovered/Resolved]
  - Large intestinal ulcer [Unknown]
  - Abdominal adhesions [Unknown]
  - Large intestinal stenosis [Unknown]
  - Abdominal pain [Not Recovered/Not Resolved]
  - Haematochezia [Not Recovered/Not Resolved]
  - Diarrhoea [Not Recovered/Not Resolved]
  - Crohn^s disease [Unknown]
  - Rectal haemorrhage [Not Recovered/Not Resolved]
  - Abdominal pain upper [Not Recovered/Not Resolved]
  - Drug ineffective [Not Recovered/Not Resolved]
  - Drug level decreased [Not Recovered/Not Resolved]
  - Diarrhoea [Not Recovered/Not Resolved]
